FAERS Safety Report 18053761 (Version 1)
Quarter: 2020Q3

REPORT INFORMATION
  Report Type: Spontaneous
  Country: US (occurrence: US)
  Receive Date: 20200721
  Receipt Date: 20200721
  Transmission Date: 20201103
  Serious: Yes (Death)
  Sender: FDA-Public Use
  Company Number: None

PATIENT
  Age: 61 Year
  Sex: Female
  Weight: 104.33 kg

DRUGS (2)
  1. FORTEO [Suspect]
     Active Substance: TERIPARATIDE
     Indication: BONE DENSITY ABNORMAL
     Dosage: ?          OTHER STRENGTH:600MCG/2.4ML , 20M;?
     Route: 058
     Dates: start: 202006
  2. FORTEO [Suspect]
     Active Substance: TERIPARATIDE
     Indication: BONE DISORDER
     Dosage: ?          OTHER STRENGTH:600MCG/2.4ML , 20M;?
     Route: 058
     Dates: start: 202006

REACTIONS (1)
  - Death [None]
